FAERS Safety Report 17845176 (Version 20)
Quarter: 2024Q4

REPORT INFORMATION
  Report Type: Report from Study
  Country: US (occurrence: US)
  Receive Date: 20200601
  Receipt Date: 20241124
  Transmission Date: 20250114
  Serious: Yes (Hospitalization, Other)
  Sender: TAKEDA
  Company Number: US-SHIRE-US202006457

PATIENT
  Age: 57 Year
  Sex: Female
  Weight: 114 kg

DRUGS (32)
  1. TEDUGLUTIDE [Suspect]
     Active Substance: TEDUGLUTIDE
     Indication: Short-bowel syndrome
     Dosage: 0.57 MILLIGRAM, QD
     Dates: start: 20181228
  2. TEDUGLUTIDE [Suspect]
     Active Substance: TEDUGLUTIDE
     Indication: Electrolyte imbalance
     Dosage: 0.57 MILLIGRAM, QD
  3. TEDUGLUTIDE [Suspect]
     Active Substance: TEDUGLUTIDE
     Dosage: 0.49 MILLILITER, QD
  4. TEDUGLUTIDE [Suspect]
     Active Substance: TEDUGLUTIDE
     Dosage: 0.5 MILLILITER, QD
  5. TEDUGLUTIDE [Suspect]
     Active Substance: TEDUGLUTIDE
     Dosage: 2 MILLIGRAM, QD
  6. TEDUGLUTIDE [Suspect]
     Active Substance: TEDUGLUTIDE
     Dosage: 2 MILLIGRAM, QD
  7. TEDUGLUTIDE [Suspect]
     Active Substance: TEDUGLUTIDE
     Dosage: 2 MILLIGRAM, QD
  8. TEDUGLUTIDE [Suspect]
     Active Substance: TEDUGLUTIDE
     Dosage: 2 MILLIGRAM, QD
  9. TEDUGLUTIDE [Suspect]
     Active Substance: TEDUGLUTIDE
     Dosage: 2 MILLIGRAM, QD
  10. TEDUGLUTIDE [Suspect]
     Active Substance: TEDUGLUTIDE
     Dosage: 2 MILLIGRAM, QD
  11. OCTREOTIDE [Suspect]
     Active Substance: OCTREOTIDE
     Indication: Product used for unknown indication
     Dosage: UNK
  12. TPN [Suspect]
     Active Substance: AMINO ACIDS\DEXTROSE\ELECTROLYTES NOS\SOYBEAN OIL
     Indication: Product used for unknown indication
     Dosage: UNK
  13. CHARCOAL ACTIVATED [Concomitant]
     Active Substance: ACTIVATED CHARCOAL
     Dosage: UNK
  14. VITAMIN D3 [Concomitant]
     Active Substance: CHOLECALCIFEROL
     Dosage: UNK
  15. VITAMIN A [Concomitant]
     Active Substance: VITAMIN A
     Dosage: UNK
  16. POTASSIUM CHLORIDE [Concomitant]
     Active Substance: POTASSIUM CHLORIDE
     Dosage: UNK
  17. THIAMINE HYDROCHLORIDE [Concomitant]
     Active Substance: THIAMINE HYDROCHLORIDE
     Dosage: UNK
  18. VITAMIN C [Concomitant]
     Active Substance: ASCORBIC ACID
     Dosage: UNK
  19. SODIUM CHLORIDE [Concomitant]
     Active Substance: SODIUM CHLORIDE
     Dosage: UNK
  20. PROMETRIUM [Concomitant]
     Active Substance: PROGESTERONE
     Dosage: UNK
  21. MIDODRINE HYDROCHLORIDE [Concomitant]
     Active Substance: MIDODRINE HYDROCHLORIDE
     Dosage: 10 MILLIGRAM
  22. MAGNESIUM [Concomitant]
     Active Substance: MAGNESIUM
     Dosage: UNK
  23. FERROUS SULFATE [Concomitant]
     Active Substance: FERROUS SULFATE
     Dosage: UNK
  24. FAMOTIDINE [Concomitant]
     Active Substance: FAMOTIDINE
     Dosage: UNK
  25. CYANOCOBALAMIN [Concomitant]
     Active Substance: CYANOCOBALAMIN
     Dosage: UNK
  26. TYLENOL [Concomitant]
     Active Substance: ACETAMINOPHEN
     Dosage: UNK
  27. VITAMIN B COMPLEX WITH C [Concomitant]
     Active Substance: ASCORBIC ACID\CALCIUM PANTOTHENATE\CYANOCOBALAMIN\NIACINAMIDE\PYRIDOXINE HYDROCHLORIDE\RIBOFLAVIN\TH
     Dosage: UNK
  28. ESTROGENS [Concomitant]
     Active Substance: ESTROGENS
     Dosage: UNK
  29. UNSPECIFIED INGREDIENT [Concomitant]
     Active Substance: UNSPECIFIED INGREDIENT
     Dosage: UNK
  30. SELENIUM [Concomitant]
     Active Substance: SELENIUM
     Dosage: UNK
  31. VITAMIN E [Concomitant]
     Active Substance: .ALPHA.-TOCOPHEROL
     Dosage: UNK
  32. CYTOMEL [Concomitant]
     Active Substance: LIOTHYRONINE SODIUM
     Dosage: UNK

REACTIONS (61)
  - Brain injury [Unknown]
  - Obsessive-compulsive disorder [Unknown]
  - Mania [Unknown]
  - Mental disorder [Unknown]
  - Dehydration [Unknown]
  - Dislocation of vertebra [Unknown]
  - Brain oedema [Unknown]
  - Seizure [Unknown]
  - Renal failure [Unknown]
  - Chronic kidney disease [Unknown]
  - Sepsis [Recovering/Resolving]
  - Electrolyte imbalance [Recovering/Resolving]
  - Limb injury [Unknown]
  - Fatigue [Unknown]
  - Illness [Unknown]
  - Asthenia [Unknown]
  - Diarrhoea [Not Recovered/Not Resolved]
  - Food poisoning [Recovering/Resolving]
  - Weight decreased [Unknown]
  - Hernia [Unknown]
  - Stoma complication [Unknown]
  - Muscle spasms [Not Recovered/Not Resolved]
  - Blood albumin decreased [Unknown]
  - Blood magnesium decreased [Unknown]
  - Fall [Unknown]
  - Mobility decreased [Not Recovered/Not Resolved]
  - Blood potassium decreased [Unknown]
  - Blister [Unknown]
  - Skin exfoliation [Unknown]
  - Gastrointestinal disorder [Unknown]
  - Bronchospasm [Unknown]
  - Insurance issue [Recovered/Resolved]
  - Gait inability [Recovering/Resolving]
  - Phonophobia [Unknown]
  - Palpitations [Recovering/Resolving]
  - Multiple allergies [Recovering/Resolving]
  - Contusion [Recovering/Resolving]
  - Joint injury [Recovering/Resolving]
  - Photophobia [Recovering/Resolving]
  - Post-traumatic stress disorder [Recovering/Resolving]
  - Grimacing [Recovering/Resolving]
  - Dysgraphia [Recovering/Resolving]
  - Foot fracture [Unknown]
  - Bursitis [Unknown]
  - Weight increased [Unknown]
  - Death of relative [Unknown]
  - Thyroid disorder [Unknown]
  - Eating disorder [Unknown]
  - Hunger [Unknown]
  - Seasonal allergy [Unknown]
  - Incorrect dose administered [Unknown]
  - Product use issue [Unknown]
  - Product dose omission issue [Unknown]
  - Off label use [Unknown]
  - Inappropriate schedule of product administration [Unknown]
  - Arthropod bite [Unknown]
  - Dermatitis allergic [Unknown]
  - Appetite disorder [Unknown]
  - Nasopharyngitis [Unknown]
  - Vomiting [Unknown]
  - Abdominal pain [Unknown]

NARRATIVE: CASE EVENT DATE: 20211009
